FAERS Safety Report 9843171 (Version 2)
Quarter: 2014Q1

REPORT INFORMATION
  Report Type: Spontaneous
  Country: US (occurrence: US)
  Receive Date: 20140124
  Receipt Date: 20140129
  Transmission Date: 20141002
  Serious: No
  Sender: FDA-Public Use
  Company Number: US-TEVA-457624USA

PATIENT
  Age: 77 Year
  Sex: Female
  Weight: 54.48 kg

DRUGS (6)
  1. PROAIR HFA [Suspect]
     Indication: COUGH
     Route: 055
     Dates: start: 20140111
  2. PROAIR HFA [Suspect]
     Indication: DYSPNOEA
  3. PROAIR HFA [Suspect]
     Indication: WHEEZING
  4. PROAIR HFA [Suspect]
     Indication: BRONCHITIS
  5. LORATADINE [Concomitant]
  6. BENZONATATE [Concomitant]

REACTIONS (4)
  - Epistaxis [Recovered/Resolved]
  - Haemoptysis [Recovered/Resolved]
  - Dysgeusia [Recovered/Resolved]
  - Product quality issue [Unknown]
